FAERS Safety Report 8812000 (Version 2)
Quarter: 2015Q1

REPORT INFORMATION
  Report Type: Report from Study
  Country: US (occurrence: US)
  Receive Date: 20120927
  Receipt Date: 20150122
  Transmission Date: 20150721
  Serious: Yes (Death)
  Sender: FDA-Public Use
  Company Number: US-ROCHE-1129983

PATIENT
  Sex: Female

DRUGS (8)
  1. ZANTAC [Concomitant]
     Active Substance: RANITIDINE HYDROCHLORIDE
     Route: 065
  2. HERCEPTIN [Suspect]
     Active Substance: TRASTUZUMAB
     Indication: BREAST CANCER FEMALE
     Dosage: LOADING DOSE
     Route: 042
     Dates: start: 20000613
  3. TAXOL [Concomitant]
     Active Substance: PACLITAXEL
     Route: 065
  4. ANZEMET [Concomitant]
     Active Substance: DOLASETRON MESYLATE
     Route: 065
  5. TAXOTERE [Concomitant]
     Active Substance: DOCETAXEL
     Route: 065
  6. BENADRYL [Concomitant]
     Active Substance: DIPHENHYDRAMINE HYDROCHLORIDE
     Route: 065
  7. HERCEPTIN [Suspect]
     Active Substance: TRASTUZUMAB
     Indication: BREAST CANCER FEMALE
     Dosage: MAINTENANCE DOSE
     Route: 042
     Dates: start: 20000620
  8. DECADRON [Concomitant]
     Active Substance: DEXAMETHASONE
     Route: 065

REACTIONS (2)
  - Death [Fatal]
  - Dyspnoea exertional [Unknown]
